FAERS Safety Report 4618992-4 (Version None)
Quarter: 2005Q1

REPORT INFORMATION
  Report Type: 
  Country: None (occurrence: None)
  Receive Date: 20050325
  Receipt Date: 20050315
  Transmission Date: 20050727
  Serious: Yes (Hospitalization)
  Sender: FDA-Public Use
  Company Number: 200510705EU

PATIENT
  Age: 72 Year
  Sex: Male

DRUGS (6)
  1. SEGURIL [Suspect]
     Indication: HEPATIC CIRRHOSIS
     Route: 048
     Dates: start: 20050101
  2. ALDACTONE [Suspect]
     Indication: HEPATIC CIRRHOSIS
     Route: 048
     Dates: start: 20050101
  3. DIGOXIN [Concomitant]
     Indication: ARRHYTHMIA
     Route: 048
  4. TARDYFERON [Concomitant]
     Indication: IRON DEFICIENCY ANAEMIA
     Route: 048
  5. NOROXIN [Concomitant]
     Indication: PROPHYLAXIS
     Route: 048
  6. DUPHALAC [Concomitant]
     Indication: PROPHYLAXIS
     Route: 048

REACTIONS (4)
  - BLOOD SODIUM DECREASED [None]
  - ENCEPHALOPATHY [None]
  - HYPERKALAEMIA [None]
  - LABORATORY TEST ABNORMAL [None]
